FAERS Safety Report 26108906 (Version 1)
Quarter: 2025Q4

REPORT INFORMATION
  Report Type: Spontaneous
  Country: CN (occurrence: CN)
  Receive Date: 20251201
  Receipt Date: 20251201
  Transmission Date: 20260118
  Serious: Yes (Life-Threatening, Other)
  Sender: MYLAN
  Company Number: CN-MYLANLABS-2025M1101413

PATIENT
  Age: 73 Year
  Sex: Female
  Weight: 60 kg

DRUGS (12)
  1. AMBISOME [Suspect]
     Active Substance: AMPHOTERICIN B
     Indication: Systemic candida
     Dosage: 250 MILLIGRAM, QD
     Dates: start: 20251121, end: 20251122
  2. AMBISOME [Suspect]
     Active Substance: AMPHOTERICIN B
     Dosage: 250 MILLIGRAM, QD
     Route: 042
     Dates: start: 20251121, end: 20251122
  3. AMBISOME [Suspect]
     Active Substance: AMPHOTERICIN B
     Dosage: 250 MILLIGRAM, QD
     Route: 042
     Dates: start: 20251121, end: 20251122
  4. AMBISOME [Suspect]
     Active Substance: AMPHOTERICIN B
     Dosage: 250 MILLIGRAM, QD
     Dates: start: 20251121, end: 20251122
  5. WATER FOR INJECTION [Concomitant]
     Active Substance: WATER
     Dosage: UNK
     Dates: start: 20251121, end: 20251122
  6. WATER FOR INJECTION [Concomitant]
     Active Substance: WATER
     Dosage: UNK
     Route: 065
     Dates: start: 20251121, end: 20251122
  7. WATER FOR INJECTION [Concomitant]
     Active Substance: WATER
     Dosage: UNK
     Route: 065
     Dates: start: 20251121, end: 20251122
  8. WATER FOR INJECTION [Concomitant]
     Active Substance: WATER
     Dosage: UNK
     Dates: start: 20251121, end: 20251122
  9. DEXTROSE [Concomitant]
     Active Substance: DEXTROSE MONOHYDRATE
     Dosage: 150 MILLILITER
     Dates: start: 20251121, end: 20251122
  10. DEXTROSE [Concomitant]
     Active Substance: DEXTROSE MONOHYDRATE
     Dosage: 150 MILLILITER
     Route: 042
     Dates: start: 20251121, end: 20251122
  11. DEXTROSE [Concomitant]
     Active Substance: DEXTROSE MONOHYDRATE
     Dosage: 150 MILLILITER
     Route: 042
     Dates: start: 20251121, end: 20251122
  12. DEXTROSE [Concomitant]
     Active Substance: DEXTROSE MONOHYDRATE
     Dosage: 150 MILLILITER
     Dates: start: 20251121, end: 20251122

REACTIONS (2)
  - Shock [Recovering/Resolving]
  - Cyanosis [Recovering/Resolving]

NARRATIVE: CASE EVENT DATE: 20251122
